FAERS Safety Report 6728081-0 (Version None)
Quarter: 2010Q2

REPORT INFORMATION
  Report Type: 
  Country: None (occurrence: None)
  Receive Date: 20100517
  Receipt Date: 20100507
  Transmission Date: 20101027
  Serious: Yes (Death, Other)
  Sender: FDA-Public Use
  Company Number: GXKR2010JP05169

PATIENT
  Age: 68 Year
  Sex: Female

DRUGS (8)
  1. DEXAMETHASONE (NGX) [Suspect]
     Indication: PROPHYLAXIS OF NAUSEA AND VOMITING
     Dosage: 24 MG, ON DAY 1
     Route: 042
  2. DEXAMETHASONE (NGX) [Suspect]
     Dosage: 8 MG, ON DAYS 2-4
     Route: 048
  3. DEXAMETHASONE (NGX) [Suspect]
     Dosage: 16 MG, ON DAYS 2-4
     Route: 048
  4. DEXAMETHASONE (NGX) [Suspect]
     Dosage: 8 MG, ON DAYS 5-6
     Route: 048
  5. DOXORUBICIN HCL [Concomitant]
     Dosage: 90 MG, ON DAY 1
     Route: 042
  6. CYCLOPHOSPHAMIDE [Concomitant]
     Dosage: 900 MG, ON DAY 1
     Route: 042
  7. GRANISETRON [Concomitant]
  8. PROCHLORPERAZINE [Concomitant]

REACTIONS (6)
  - COMPLETED SUICIDE [None]
  - DECREASED APPETITE [None]
  - DECREASED INTEREST [None]
  - DEPRESSION [None]
  - FATIGUE [None]
  - HYPERSOMNIA [None]
